FAERS Safety Report 4605811-5 (Version None)
Quarter: 2005Q1

REPORT INFORMATION
  Report Type: 
  Country: None (occurrence: None)
  Receive Date: 20050116
  Receipt Date: 20040719
  Transmission Date: 20050727
  Serious: Yes (Other)
  Sender: FDA-Public Use
  Company Number: HQWYE256520JUL04

PATIENT
  Age: 54 Year
  Sex: Female
  Weight: 34.05 kg

DRUGS (2)
  1. EFFEXOR [Suspect]
     Indication: ANOREXIA
     Dosage: 200 MG 2X PER 1 DAY, ORAL
     Route: 048
     Dates: start: 19960101
  2. EFFEXOR [Suspect]
     Indication: BULIMIA NERVOSA
     Dosage: 200 MG 2X PER 1 DAY, ORAL
     Route: 048
     Dates: start: 19960101

REACTIONS (3)
  - BLOOD CHOLESTEROL INCREASED [None]
  - BLOOD POTASSIUM INCREASED [None]
  - HYPERTENSION [None]
